FAERS Safety Report 9344100 (Version 3)
Quarter: 2013Q4

REPORT INFORMATION
  Report Type: Report from Study
  Country: BE (occurrence: BE)
  Receive Date: 20130612
  Receipt Date: 20131202
  Transmission Date: 20140711
  Serious: Yes (Death, Life-Threatening, Hospitalization, Other)
  Sender: FDA-Public Use
  Company Number: PHHO2013BE006215

PATIENT
  Sex: 0

DRUGS (10)
  1. AFINITOR [Suspect]
     Indication: BREAST CANCER METASTATIC
     Dosage: 10 MG, UNK
     Dates: start: 20130419, end: 20130505
  2. EXEMESTANE [Suspect]
     Indication: BREAST CANCER METASTATIC
     Dosage: 25 MG, UNK
     Dates: start: 20130419, end: 20130505
  3. OMEPRAZOLE [Concomitant]
     Indication: PROPHYLAXIS AGAINST GASTROINTESTINAL ULCER
     Dosage: 20 MG, QD
  4. RYTMONORM [Concomitant]
     Indication: CONDUCTION DISORDER
     Dosage: 225 MG, BID
  5. XANAX [Concomitant]
     Dosage: 0.25 MG, UNK
  6. EMCONCOR [Concomitant]
     Indication: HYPERTENSION
     Dosage: 5 MG, UNK
  7. CLEXAN [Concomitant]
     Dosage: 80 MG, UNK
  8. DIFLUCAN [Concomitant]
     Dosage: 200 MG, UNK
     Route: 042
  9. EUSAPRIM                                /GFR/ [Concomitant]
     Dosage: 4X4 HRS
     Route: 042
  10. MOBIC [Concomitant]
     Indication: CANCER PAIN
     Dosage: 15 MG, UNK

REACTIONS (4)
  - Lung disorder [Fatal]
  - Dyspnoea [Not Recovered/Not Resolved]
  - Pyrexia [Recovered/Resolved]
  - Pneumothorax [Recovered/Resolved]
